FAERS Safety Report 7609021-9 (Version None)
Quarter: 2011Q3

REPORT INFORMATION
  Report Type: 
  Country: None (occurrence: None)
  Receive Date: 20110714
  Receipt Date: 20110701
  Transmission Date: 20111222
  Serious: Yes (Hospitalization)
  Sender: FDA-Public Use
  Company Number: DE-ROCHE-769537

PATIENT
  Sex: Male
  Weight: 73.3 kg

DRUGS (6)
  1. LEUCOVORIN CALCIUM [Suspect]
     Indication: METASTATIC GASTRIC CANCER
     Route: 065
  2. PROCHLORPERAZINE [Suspect]
     Indication: PAIN
     Route: 065
  3. FLUOROURACIL [Suspect]
     Indication: METASTATIC GASTRIC CANCER
     Route: 065
  4. NALOXONE [Suspect]
     Indication: PAIN
     Route: 065
  5. TRASTUZUMAB [Suspect]
     Indication: METASTATIC GASTRIC CANCER
     Route: 065
  6. CISPLATIN [Suspect]
     Indication: METASTATIC GASTRIC CANCER
     Route: 065

REACTIONS (11)
  - DEHYDRATION [None]
  - PATHOGEN RESISTANCE [None]
  - HYPERNATRAEMIA [None]
  - HYPERKALAEMIA [None]
  - DIARRHOEA [None]
  - URINARY TRACT INFECTION [None]
  - URINARY TRACT INFECTION BACTERIAL [None]
  - RENAL FAILURE ACUTE [None]
  - NAUSEA [None]
  - VOMITING [None]
  - ABDOMINAL PAIN [None]
